FAERS Safety Report 21578549 (Version 1)
Quarter: 2022Q4

REPORT INFORMATION
  Report Type: Spontaneous
  Country: BA (occurrence: BA)
  Receive Date: 20221110
  Receipt Date: 20221110
  Transmission Date: 20230113
  Serious: Yes (Other)
  Sender: FDA-Public Use
  Company Number: BA-PFIZER INC-PV202200092178

PATIENT
  Age: 51 Year
  Sex: Male

DRUGS (7)
  1. AXITINIB [Suspect]
     Active Substance: AXITINIB
     Dosage: UNK
     Dates: start: 20210726, end: 202108
  2. AXITINIB [Suspect]
     Active Substance: AXITINIB
     Dosage: UNK
     Dates: start: 202109, end: 2022
  3. AXITINIB [Suspect]
     Active Substance: AXITINIB
     Dosage: AFTER 7 DAYS, THE PATIENT STARTS THE THERAPY AGAIN
     Dates: start: 2022, end: 202204
  4. AXITINIB [Suspect]
     Active Substance: AXITINIB
     Dosage: A BREAK OF 7 DAYS IN THERAPY
     Dates: start: 2022
  5. PEMBROLIZUMAB [Suspect]
     Active Substance: PEMBROLIZUMAB
     Dosage: UNK
     Dates: start: 202108, end: 202108
  6. PEMBROLIZUMAB [Suspect]
     Active Substance: PEMBROLIZUMAB
     Dosage: UNK
     Dates: start: 202109, end: 202112
  7. PEMBROLIZUMAB [Suspect]
     Active Substance: PEMBROLIZUMAB
     Dosage: UNK
     Dates: start: 20220110

REACTIONS (8)
  - Blood thyroid stimulating hormone decreased [Recovered/Resolved]
  - Hypothyroidism [Not Recovered/Not Resolved]
  - Plantar erythema [Unknown]
  - Skin hypertrophy [Unknown]
  - Gait disturbance [Unknown]
  - Pain [Unknown]
  - Fatigue [Unknown]
  - Off label use [Unknown]

NARRATIVE: CASE EVENT DATE: 20210801
